FAERS Safety Report 9060194 (Version 3)
Quarter: 2013Q4

REPORT INFORMATION
  Report Type: Report from Study
  Country: CA (occurrence: CA)
  Receive Date: 20130212
  Receipt Date: 20131226
  Transmission Date: 20140711
  Serious: Yes (Hospitalization, Other)
  Sender: FDA-Public Use
  Company Number: PHHY2011CA16056

PATIENT
  Sex: Female

DRUGS (4)
  1. ACLASTA [Suspect]
     Indication: OSTEOPOROSIS
     Dosage: UNK
     Route: 042
     Dates: start: 20100219
  2. ACLASTA [Suspect]
     Dosage: UNK
     Route: 042
     Dates: start: 20110219
  3. ACLASTA [Suspect]
     Dosage: UNK
     Route: 042
     Dates: start: 20120223
  4. ACLASTA [Suspect]
     Dosage: UNK
     Route: 042
     Dates: start: 20130312

REACTIONS (7)
  - Dry skin [Recovered/Resolved]
  - Vein disorder [Recovered/Resolved]
  - Infusion site extravasation [Recovered/Resolved]
  - Dementia [Unknown]
  - Asthenia [Unknown]
  - Syncope [Recovered/Resolved]
  - Dehydration [Recovered/Resolved]
